FAERS Safety Report 5160780-7 (Version None)
Quarter: 2006Q4

REPORT INFORMATION
  Report Type: 
  Country: None (occurrence: None)
  Receive Date: 20060919
  Receipt Date: 20060711
  Transmission Date: 20070319
  Serious: No
  Sender: FDA-Public Use
  Company Number: BDI-008427

PATIENT
  Age: 59 Year
  Sex: Female

DRUGS (2)
  1. MULTIHANCE [Suspect]
     Indication: BREAST CANCER
     Dosage: 20 ML ONCE IV
     Route: 042
     Dates: start: 20060605, end: 20060605
  2. MULTIHANCE [Suspect]
     Indication: NUCLEAR MAGNETIC RESONANCE IMAGING
     Dosage: 20 ML ONCE IV
     Route: 042
     Dates: start: 20060605, end: 20060605

REACTIONS (2)
  - CHEST DISCOMFORT [None]
  - DYSPNOEA [None]
